FAERS Safety Report 11031970 (Version 2)
Quarter: 2015Q2

REPORT INFORMATION
  Report Type: Report from Study
  Country: FR (occurrence: FR)
  Receive Date: 20150415
  Receipt Date: 20150518
  Transmission Date: 20150821
  Serious: Yes (Hospitalization, Other)
  Sender: FDA-Public Use
  Company Number: PHHY2015FR040711

PATIENT
  Age: 72 Year
  Sex: Male

DRUGS (3)
  1. CERTICAN [Suspect]
     Active Substance: EVEROLIMUS
     Indication: RENAL TRANSPLANT
     Dosage: 2 MG, UNK
     Route: 048
     Dates: start: 20110401
  2. CERTICAN [Suspect]
     Active Substance: EVEROLIMUS
     Indication: PROPHYLAXIS AGAINST TRANSPLANT REJECTION
  3. MYCOPHENOLIC ACID. [Suspect]
     Active Substance: MYCOPHENOLIC ACID
     Indication: PROPHYLAXIS AGAINST TRANSPLANT REJECTION
     Dosage: 720 MG, UNK
     Route: 048
     Dates: start: 20121010, end: 20140423

REACTIONS (6)
  - Complications of transplanted kidney [Recovered/Resolved]
  - Arteriovenous fistula site infection [Recovered/Resolved]
  - Necrosis of artery [Recovered/Resolved]
  - Arteriovenous fistula site infection [Recovered/Resolved]
  - Complications of transplanted kidney [Unknown]
  - Necrosis of artery [Recovered/Resolved]

NARRATIVE: CASE EVENT DATE: 20121010
